FAERS Safety Report 8825411 (Version 1)
Quarter: 2012Q4

REPORT INFORMATION
  Report Type: Report from Study
  Country: DE (occurrence: DE)
  Receive Date: 20121004
  Receipt Date: 20121004
  Transmission Date: 20130627
  Serious: Yes (Hospitalization)
  Sender: FDA-Public Use
  Company Number: DE-TEVA-360669GER

PATIENT
  Age: 77 Year
  Sex: Male

DRUGS (5)
  1. DOXORUBICIN [Suspect]
     Indication: NON-HODGKIN^S LYMPHOMA
     Route: 042
  2. VINCRISTINE [Suspect]
     Indication: NON-HODGKIN^S LYMPHOMA
  3. PREDNISOLONE [Suspect]
     Indication: NON-HODGKIN^S LYMPHOMA
  4. RITUXIMAB [Suspect]
     Indication: NON-HODGKIN^S LYMPHOMA
     Route: 042
  5. CYCLOPHOSPHAMIDE [Suspect]
     Indication: NON-HODGKIN^S LYMPHOMA
     Route: 042

REACTIONS (2)
  - Spinal fracture [Unknown]
  - Lumbar vertebral fracture [Unknown]
